FAERS Safety Report 5147618-9 (Version None)
Quarter: 2006Q4

REPORT INFORMATION
  Report Type: 
  Country: None (occurrence: None)
  Receive Date: 20061110
  Receipt Date: 20061031
  Transmission Date: 20070319
  Serious: Yes (Other)
  Sender: FDA-Public Use
  Company Number: US-JNJFOC-20061100342

PATIENT
  Age: 21 Year
  Sex: Male

DRUGS (1)
  1. PREZISTA [Suspect]
     Indication: HIV INFECTION
     Dosage: RECEIVED PREZISTA FOR APPROXIMATELY 4 WEEKS
     Route: 048

REACTIONS (1)
  - HEPATIC ENZYME INCREASED [None]
